FAERS Safety Report 15046741 (Version 1)
Quarter: 2018Q2

REPORT INFORMATION
  Report Type: Spontaneous
  Country: US (occurrence: US)
  Receive Date: 20180621
  Receipt Date: 20180621
  Transmission Date: 20180711
  Serious: Yes (Disabling)
  Sender: FDA-Public Use
  Company Number: US-OTSUKA-2018_015711

PATIENT
  Sex: Female

DRUGS (1)
  1. ABILIFY [Suspect]
     Active Substance: ARIPIPRAZOLE
     Indication: BIPOLAR DISORDER
     Dosage: 10 MG, QD
     Route: 065
     Dates: start: 201104, end: 201410

REACTIONS (17)
  - Compulsive sexual behaviour [Recovered/Resolved]
  - Disability [Unknown]
  - Mental impairment [Unknown]
  - Economic problem [Unknown]
  - Gambling disorder [Unknown]
  - Shoplifting [Unknown]
  - Loss of employment [Unknown]
  - Anhedonia [Unknown]
  - Sexually inappropriate behaviour [Recovered/Resolved]
  - Emotional distress [Unknown]
  - Compulsive shopping [Recovered/Resolved]
  - Pain [Unknown]
  - Substance abuse [Unknown]
  - Theft [Unknown]
  - Injury [Unknown]
  - Gambling disorder [Recovered/Resolved]
  - Social problem [Unknown]

NARRATIVE: CASE EVENT DATE: 2011
